APPROVED DRUG PRODUCT: RIZATRIPTAN BENZOATE
Active Ingredient: RIZATRIPTAN BENZOATE
Strength: EQ 5MG BASE
Dosage Form/Route: TABLET, ORALLY DISINTEGRATING;ORAL
Application: A203334 | Product #001
Applicant: JUBILANT GENERICS LTD
Approved: Oct 16, 2015 | RLD: No | RS: No | Type: DISCN